FAERS Safety Report 17147923 (Version 1)
Quarter: 2019Q4

REPORT INFORMATION
  Report Type: Spontaneous
  Country: CN (occurrence: CN)
  Receive Date: 20191212
  Receipt Date: 20191212
  Transmission Date: 20200122
  Serious: Yes (Other)
  Sender: FDA-Public Use
  Company Number: CN-PURDUE-GBR-2019-0073164

PATIENT
  Age: 53 Year
  Sex: Male
  Weight: 47 kg

DRUGS (4)
  1. MS CONTIN [Suspect]
     Active Substance: MORPHINE SULFATE
     Indication: ANALGESIC THERAPY
     Dosage: 100 MG, Q12H
     Route: 048
     Dates: start: 20190920, end: 20191007
  2. MS CONTIN [Suspect]
     Active Substance: MORPHINE SULFATE
     Dosage: 90 MG, Q12H
     Route: 048
     Dates: start: 20190909, end: 20191010
  3. GABAPENTIN. [Concomitant]
     Active Substance: GABAPENTIN
     Indication: ANALGESIC THERAPY
     Dosage: 0.3 G, TID
     Route: 048
     Dates: start: 20190911, end: 20191007
  4. CELEBREX [Concomitant]
     Active Substance: CELECOXIB

REACTIONS (4)
  - Somnolence [Recovering/Resolving]
  - Respiratory rate decreased [Unknown]
  - Disorganised speech [Recovering/Resolving]
  - Drug ineffective [Unknown]

NARRATIVE: CASE EVENT DATE: 20191007
